FAERS Safety Report 8791188 (Version 2)
Quarter: 2012Q4

REPORT INFORMATION
  Report Type: Spontaneous
  Country: JP (occurrence: None)
  Receive Date: 20120911
  Receipt Date: 20121009
  Transmission Date: 20130627
  Serious: Yes (Hospitalization)
  Sender: FDA-Public Use
  Company Number: DSJ-2012-16201

PATIENT
  Age: 59 Year
  Sex: Male
  Weight: 54 kg

DRUGS (9)
  1. OLMETEC [Suspect]
     Indication: HYPERTENSION
     Route: 048
     Dates: end: 20120703
  2. LIVALO [Suspect]
     Indication: HYPERLIPIDAEMIA
     Route: 048
     Dates: end: 20120703
  3. MIGLITOL [Suspect]
     Indication: TYPE I DIABETES MELLITUS
     Route: 048
     Dates: end: 20120703
  4. CANDESARTAN CILEXETIL [Suspect]
     Indication: HYPERTENSION
     Route: 048
     Dates: end: 20120703
  5. TICLOPIDINE [Suspect]
     Indication: DRUG USE FOR UNKNOWN INDICATION
     Route: 048
     Dates: start: 201206, end: 20120703
  6. DIPYRIDAMOLE [Suspect]
     Indication: CHRONIC RENAL IMPAIRMENT
     Route: 048
     Dates: start: 201206, end: 20120703
  7. ALLOPURINOL [Suspect]
     Indication: HYPERURICAEMIA
     Route: 048
     Dates: end: 20120703
  8. HUMALOG (INSULIN LISPRO) [Concomitant]
  9. LANTUS (INSULIN GLARGINE) [Concomitant]

REACTIONS (4)
  - Liver disorder [None]
  - Oedema [None]
  - Jaundice [None]
  - Blood bilirubin increased [None]
